FAERS Safety Report 14044140 (Version 1)
Quarter: 2017Q4

REPORT INFORMATION
  Report Type: Spontaneous
  Country: US (occurrence: US)
  Receive Date: 20171004
  Receipt Date: 20171004
  Transmission Date: 20180321
  Serious: Yes (Other)
  Sender: FDA-Public Use
  Company Number: None

PATIENT
  Sex: Female
  Weight: 81 kg

DRUGS (17)
  1. FIORICET [Concomitant]
     Active Substance: ACETAMINOPHEN\BUTALBITAL\CAFFEINE
  2. TIZANIDINE. [Concomitant]
     Active Substance: TIZANIDINE
  3. LEXAPRO [Concomitant]
     Active Substance: ESCITALOPRAM OXALATE
  4. XARELTO [Concomitant]
     Active Substance: RIVAROXABAN
  5. AMERGE [Concomitant]
     Active Substance: NARATRIPTAN HYDROCHLORIDE
  6. COMPAZINE [Concomitant]
     Active Substance: PROCHLORPERAZINE MALEATE
  7. BENADRYL [Concomitant]
     Active Substance: DIPHENHYDRAMINE HYDROCHLORIDE
  8. KLONOPIN [Concomitant]
     Active Substance: CLONAZEPAM
  9. ATORVOSTATIN [Concomitant]
     Active Substance: ATORVASTATIN
  10. BACLOFEN. [Concomitant]
     Active Substance: BACLOFEN
  11. LION^S MANE [Concomitant]
  12. ZOFRAN [Concomitant]
     Active Substance: ONDANSETRON HYDROCHLORIDE
  13. HEPARIN SODIUM. [Suspect]
     Active Substance: HEPARIN SODIUM
     Indication: PULMONARY EMBOLISM
     Dosage: ?          OTHER STRENGTH:USP PER 250 ML;QUANTITY:25000 USP PER 250 ML;OTHER FREQUENCY:CONTINUOUS VIA IV;?
     Route: 042
     Dates: start: 20170905, end: 20170908
  14. PHENERGAN [Concomitant]
     Active Substance: PROMETHAZINE HYDROCHLORIDE
  15. VITAMIN D [Concomitant]
     Active Substance: CHOLECALCIFEROL
  16. MTHFR VITAMIN B COMPLEX [Concomitant]
  17. NADOLOL. [Concomitant]
     Active Substance: NADOLOL

REACTIONS (2)
  - Migraine [None]
  - Similar reaction on previous exposure to drug [None]

NARRATIVE: CASE EVENT DATE: 20170905
